FAERS Safety Report 21746765 (Version 1)
Quarter: 2022Q4

REPORT INFORMATION
  Report Type: Spontaneous
  Country: US (occurrence: None)
  Receive Date: 20221216
  Receipt Date: 20221216
  Transmission Date: 20230113
  Serious: No
  Sender: FDA-Public Use
  Company Number: None

PATIENT
  Sex: Female

DRUGS (1)
  1. CAPECITABINE [Suspect]
     Active Substance: CAPECITABINE
     Dosage: 2000MG DAILY ORAL?
     Route: 048

REACTIONS (10)
  - Vomiting [None]
  - Hypophagia [None]
  - Somnolence [None]
  - Exercise tolerance decreased [None]
  - Walking aid user [None]
  - Swelling [None]
  - Neuropathy peripheral [None]
  - Balance disorder [None]
  - Dyspepsia [None]
  - Faeces soft [None]
